FAERS Safety Report 23171004 (Version 1)
Quarter: 2023Q4

REPORT INFORMATION
  Report Type: Spontaneous
  Country: US (occurrence: None)
  Receive Date: 20231109
  Receipt Date: 20231109
  Transmission Date: 20240110
  Serious: Yes (Hospitalization)
  Sender: FDA-Public Use
  Company Number: None

PATIENT
  Age: 70 Year
  Sex: Male
  Weight: 96.8 kg

DRUGS (1)
  1. FERAHEME [Suspect]
     Active Substance: FERUMOXYTOL NON-STOICHIOMETRIC MAGNETITE
     Indication: Iron deficiency anaemia
     Route: 042
     Dates: start: 20231031, end: 20231031

REACTIONS (12)
  - Infusion related reaction [None]
  - Speech disorder [None]
  - Gaze palsy [None]
  - Tremor [None]
  - Unresponsive to stimuli [None]
  - Blood pressure decreased [None]
  - Hyperhidrosis [None]
  - Flushing [None]
  - Gallbladder hypofunction [None]
  - Dyspnoea [None]
  - Stridor [None]
  - Chest discomfort [None]

NARRATIVE: CASE EVENT DATE: 20231031
